FAERS Safety Report 23504848 (Version 1)
Quarter: 2024Q1

REPORT INFORMATION
  Report Type: Spontaneous
  Country: DE (occurrence: DE)
  Receive Date: 20240209
  Receipt Date: 20240209
  Transmission Date: 20240410
  Serious: Yes (Disabling, Other)
  Sender: FDA-Public Use
  Company Number: None

PATIENT
  Age: 71 Year
  Sex: Male
  Weight: 82 kg

DRUGS (6)
  1. ELIQUIS [Suspect]
     Active Substance: APIXABAN
     Indication: Atrial fibrillation
     Dosage: 2X5
     Route: 048
     Dates: start: 202204
  2. PROPAFENONE [Suspect]
     Active Substance: PROPAFENONE
     Indication: Atrial fibrillation
     Dosage: 2X
     Route: 048
     Dates: start: 202207
  3. PROPAFENONE [Suspect]
     Active Substance: PROPAFENONE
     Dosage: 2X225 MM
     Route: 048
     Dates: start: 202210
  4. ROSUVASTATIN [Concomitant]
     Active Substance: ROSUVASTATIN
     Indication: Hyperlipidaemia
     Route: 048
     Dates: start: 202204
  5. CELECOXIB [Concomitant]
     Active Substance: CELECOXIB
     Indication: Product used for unknown indication
     Dosage: IRREGULAR INTAKE
  6. TAMSULOSIN [Concomitant]
     Active Substance: TAMSULOSIN
     Indication: Benign prostatic hyperplasia
     Dosage: 400
     Route: 048
     Dates: start: 2020

REACTIONS (1)
  - Retinal degeneration [Recovered/Resolved with Sequelae]

NARRATIVE: CASE EVENT DATE: 20220701
